FAERS Safety Report 14908811 (Version 5)
Quarter: 2018Q3

REPORT INFORMATION
  Report Type: Spontaneous
  Country: FR (occurrence: FR)
  Receive Date: 20180517
  Receipt Date: 20180927
  Transmission Date: 20181010
  Serious: Yes (Death, Other)
  Sender: FDA-Public Use
  Company Number: PHHY2018FR001671

PATIENT
  Age: 69 Year
  Sex: Female
  Weight: 35 kg

DRUGS (24)
  1. RITUXIMAB. [Suspect]
     Active Substance: RITUXIMAB
     Indication: CHRONIC MYELOMONOCYTIC LEUKAEMIA
     Route: 041
  2. DOXORUBICIN HYDROCHLORIDE. [Suspect]
     Active Substance: DOXORUBICIN HYDROCHLORIDE
     Indication: CHRONIC MYELOMONOCYTIC LEUKAEMIA
     Dosage: UNK
     Route: 041
  3. CIPROFLOXACINE [Suspect]
     Active Substance: CIPROFLOXACIN
     Indication: PRODUCT USED FOR UNKNOWN INDICATION
     Dosage: UNK
     Route: 041
  4. VALACICLOVIR [Suspect]
     Active Substance: VALACYCLOVIR HYDROCHLORIDE
     Indication: HERPES SIMPLEX
     Dosage: UNK
     Route: 048
  5. VORAXAZE [Suspect]
     Active Substance: GLUCARPIDASE
     Indication: PRODUCT USED FOR UNKNOWN INDICATION
     Dosage: UNK
     Route: 041
  6. BACTRIM [Suspect]
     Active Substance: SULFAMETHOXAZOLE\TRIMETHOPRIM
     Indication: PRODUCT USED FOR UNKNOWN INDICATION
     Dosage: UNK
     Route: 048
  7. EPREX [Suspect]
     Active Substance: ERYTHROPOIETIN
     Indication: PRODUCT USED FOR UNKNOWN INDICATION
     Route: 058
  8. BISOPROLOL [Suspect]
     Active Substance: BISOPROLOL
     Indication: PRODUCT USED FOR UNKNOWN INDICATION
     Dosage: UNK
     Route: 048
  9. PANTOPRAZOLE [Suspect]
     Active Substance: PANTOPRAZOLE
     Indication: PRODUCT USED FOR UNKNOWN INDICATION
     Dosage: UNK
     Route: 041
  10. FUROSEMIDE. [Suspect]
     Active Substance: FUROSEMIDE
     Indication: RENAL FAILURE
     Dosage: UNK
     Route: 048
  11. ZARZIO [Suspect]
     Active Substance: FILGRASTIM
     Indication: PRODUCT USED FOR UNKNOWN INDICATION
     Dosage: UNK
     Route: 058
  12. FUNGIZONE [Suspect]
     Active Substance: AMPHOTERICIN B
     Indication: MUCOSAL INFLAMMATION
     Route: 002
  13. CYCLOPHOSPHAMIDE. [Suspect]
     Active Substance: CYCLOPHOSPHAMIDE
     Indication: CHRONIC MYELOMONOCYTIC LEUKAEMIA
     Dosage: UNK
     Route: 041
  14. CALCIPARINE [Suspect]
     Active Substance: HEPARIN CALCIUM
     Indication: THROMBOSIS PROPHYLAXIS
     Dosage: UNK
     Route: 058
  15. VINCRISTINE [Suspect]
     Active Substance: VINCRISTINE
     Indication: CHRONIC MYELOMONOCYTIC LEUKAEMIA
     Dosage: UNK
     Route: 041
  16. METHOTREXATE. [Suspect]
     Active Substance: METHOTREXATE
     Indication: CHRONIC MYELOMONOCYTIC LEUKAEMIA
     Dosage: UNK
     Route: 041
  17. HEXTRIL [Suspect]
     Active Substance: HEXETIDINE
     Indication: MUCOSAL INFLAMMATION
     Route: 002
  18. ONDANSETRON [Suspect]
     Active Substance: ONDANSETRON
     Indication: NAUSEA
     Dosage: UNK
     Route: 048
  19. BROMAZEPAM [Suspect]
     Active Substance: BROMAZEPAM
     Indication: PRODUCT USED FOR UNKNOWN INDICATION
     Dosage: UNK
     Route: 048
  20. PREDNISONE. [Suspect]
     Active Substance: PREDNISONE
     Indication: CHRONIC MYELOMONOCYTIC LEUKAEMIA
     Dosage: UNK
     Route: 041
  21. ESCITALOPRAM [Suspect]
     Active Substance: ESCITALOPRAM OXALATE
     Indication: DEPRESSION
     Dosage: UNK
     Route: 048
  22. LIDOCAINE. [Suspect]
     Active Substance: LIDOCAINE
     Indication: MUCOSAL INFLAMMATION
     Dosage: UNK
     Route: 002
  23. EXACYL [Suspect]
     Active Substance: TRANEXAMIC ACID
     Indication: PRODUCT USED FOR UNKNOWN INDICATION
     Route: 041
  24. MEROPENEM ANHYDROUS [Suspect]
     Active Substance: MEROPENEM ANHYDROUS
     Indication: PRODUCT USED FOR UNKNOWN INDICATION
     Dosage: UNK
     Route: 041

REACTIONS (2)
  - Product use in unapproved indication [Unknown]
  - Toxic epidermal necrolysis [Fatal]

NARRATIVE: CASE EVENT DATE: 20180131
